FAERS Safety Report 12528244 (Version 2)
Quarter: 2017Q2

REPORT INFORMATION
  Report Type: Report from Study
  Country: CH (occurrence: CH)
  Receive Date: 20160705
  Receipt Date: 20170602
  Transmission Date: 20170830
  Serious: Yes (Death, Other)
  Sender: FDA-Public Use
  Company Number: CH-BAYER-2016-124610

PATIENT
  Age: 52 Year
  Sex: Female

DRUGS (10)
  1. GADOPENTETATE DIMEGLUMINE. [Suspect]
     Active Substance: GADOPENTETATE DIMEGLUMINE
     Indication: NUCLEAR MAGNETIC RESONANCE IMAGING RENAL
     Dosage: 10 MMOL, ONCE
     Dates: start: 200112, end: 200112
  2. GADOTERIDOL [Suspect]
     Active Substance: GADOTERIDOL
     Indication: NUCLEAR MAGNETIC RESONANCE IMAGING RENAL
     Dosage: 16 MMOL, ONCE
     Dates: start: 200108, end: 200108
  3. GADOTERIDOL [Suspect]
     Active Substance: GADOTERIDOL
     Indication: RENAL TRANSPLANT FAILURE
     Dosage: 16 MMOL, ONCE
     Dates: start: 200205, end: 200205
  4. GADOVIST [Concomitant]
     Active Substance: GADOBUTROL
     Indication: NUCLEAR MAGNETIC RESONANCE IMAGING BRAIN
     Dosage: 7.5 MMOL, ONCE
     Dates: start: 200512, end: 200512
  5. GADOTERIDOL [Suspect]
     Active Substance: GADOTERIDOL
     Indication: NUCLEAR MAGNETIC RESONANCE IMAGING RENAL
     Dosage: 15 MMOL, ONCE
     Dates: start: 200504, end: 200504
  6. GADODIAMIDE [Suspect]
     Active Substance: GADODIAMIDE
     Indication: RENAL TRANSPLANT FAILURE
  7. GADOVIST [Concomitant]
     Active Substance: GADOBUTROL
     Indication: ALTERED STATE OF CONSCIOUSNESS
  8. GADOPENTETATE DIMEGLUMINE. [Suspect]
     Active Substance: GADOPENTETATE DIMEGLUMINE
     Indication: RENAL TRANSPLANT FAILURE
     Dosage: 10 MMOL, ONCE
     Dates: start: 200208, end: 200208
  9. GADODIAMIDE [Suspect]
     Active Substance: GADODIAMIDE
     Indication: NUCLEAR MAGNETIC RESONANCE IMAGING RENAL
     Dosage: 16 MMOL, ONCE
     Dates: start: 200105, end: 200105
  10. GADOVIST [Concomitant]
     Active Substance: GADOBUTROL
     Indication: CONFUSIONAL STATE

REACTIONS (4)
  - Altered state of consciousness [None]
  - Nephrogenic systemic fibrosis [Fatal]
  - Contrast media deposition [None]
  - Confusional state [None]

NARRATIVE: CASE EVENT DATE: 200511
